FAERS Safety Report 7709662-4 (Version None)
Quarter: 2011Q3

REPORT INFORMATION
  Report Type: 
  Country: None (occurrence: None)
  Receive Date: 20110825
  Receipt Date: 20110822
  Transmission Date: 20111222
  Serious: Yes (Hospitalization)
  Sender: FDA-Public Use
  Company Number: CA-GLAXOSMITHKLINE-A0941777A

PATIENT
  Sex: Female
  Weight: 45 kg

DRUGS (5)
  1. VARENICLINE TARTRATE [Concomitant]
  2. SPIRIVA [Concomitant]
  3. ATROVENT [Concomitant]
  4. ADVAIR DISKUS 100/50 [Suspect]
     Indication: CHRONIC OBSTRUCTIVE PULMONARY DISEASE
     Dosage: 1PUFF TWICE PER DAY
     Route: 055
     Dates: start: 20070101, end: 20110601
  5. VENTOLIN [Concomitant]

REACTIONS (4)
  - PNEUMONIA [None]
  - SUTURE INSERTION [None]
  - WEIGHT GAIN POOR [None]
  - FALL [None]
